FAERS Safety Report 5467266-0 (Version None)
Quarter: 2007Q3

REPORT INFORMATION
  Report Type: 
  Country: None (occurrence: None)
  Receive Date: 20070925
  Receipt Date: 20070921
  Transmission Date: 20080115
  Serious: Yes (Hospitalization)
  Sender: FDA-Public Use
  Company Number: US-ASTRAZENECA-2007UW22222

PATIENT
  Age: 77 Year
  Sex: Female
  Weight: 65.8 kg

DRUGS (6)
  1. ARIMIDEX [Suspect]
     Indication: BREAST CANCER
     Route: 048
     Dates: start: 20020101, end: 20070501
  2. NORVASC [Concomitant]
  3. VYTORIN [Concomitant]
  4. SYNVISC [Concomitant]
  5. CORTISONE ACETATE TAB [Concomitant]
  6. ANTI-INFLAMMATORIES [Concomitant]

REACTIONS (3)
  - ARTHRALGIA [None]
  - ARTHRITIS [None]
  - JOINT INJURY [None]
